FAERS Safety Report 19961349 (Version 2)
Quarter: 2021Q4

REPORT INFORMATION
  Report Type: Spontaneous
  Country: US (occurrence: US)
  Receive Date: 20211017
  Receipt Date: 20211023
  Transmission Date: 20220303
  Serious: No
  Sender: FDA-Public Use
  Company Number: US-JNJFOC-20210940714

PATIENT
  Age: 43 Year
  Sex: Male
  Weight: 79.45 kg

DRUGS (3)
  1. TREMFYA [Suspect]
     Active Substance: GUSELKUMAB
     Indication: Psoriasis
     Route: 058
  2. TREMFYA [Suspect]
     Active Substance: GUSELKUMAB
  3. TYLENOL [Concomitant]
     Active Substance: ACETAMINOPHEN

REACTIONS (4)
  - Product dose omission issue [Unknown]
  - Product administration error [Unknown]
  - Device malfunction [Unknown]
  - Product label issue [Unknown]

NARRATIVE: CASE EVENT DATE: 20210920
